FAERS Safety Report 20013202 (Version 1)
Quarter: 2021Q4

REPORT INFORMATION
  Report Type: Report from Study
  Country: PL (occurrence: PL)
  Receive Date: 20211029
  Receipt Date: 20211029
  Transmission Date: 20220303
  Serious: Yes (Other)
  Sender: FDA-Public Use
  Company Number: PL-TAKEDA-2021TUS036076

PATIENT
  Age: 70 Year
  Sex: Male
  Weight: 100 kg

DRUGS (8)
  1. MOBOCERTINIB [Suspect]
     Active Substance: MOBOCERTINIB
     Indication: Non-small cell lung cancer stage IV
     Dosage: 120 MILLIGRAM, QD
     Route: 048
     Dates: start: 20210219, end: 20210319
  2. MOBOCERTINIB [Suspect]
     Active Substance: MOBOCERTINIB
     Dosage: 90 MILLIGRAM
     Route: 048
     Dates: start: 20210326
  3. MOBOCERTINIB [Suspect]
     Active Substance: MOBOCERTINIB
     Dosage: 80 MILLIGRAM
     Route: 065
  4. BISOPROLOL [Concomitant]
     Active Substance: BISOPROLOL
     Indication: Hypertonia
     Dosage: 2.5 MILLIGRAM
     Route: 048
  5. Ketonal [Concomitant]
     Indication: Pain
     Dosage: 100 MILLIGRAM
     Route: 048
  6. Ipp [Concomitant]
     Indication: Prophylaxis
     Dosage: 20 MILLIGRAM
     Route: 048
  7. ENOXAPARIN SODIUM [Concomitant]
     Active Substance: ENOXAPARIN SODIUM
     Indication: Venous thrombosis
     Dosage: 100 MILLIGRAM
     Route: 058
  8. Naxalgan [Concomitant]
     Indication: Pain
     Dosage: 75 MILLIGRAM
     Route: 048

REACTIONS (3)
  - Rash [Recovered/Resolved]
  - Skin lesion [Unknown]
  - Diarrhoea [Unknown]

NARRATIVE: CASE EVENT DATE: 20210317
